FAERS Safety Report 8447650-3 (Version None)
Quarter: 2012Q2

REPORT INFORMATION
  Report Type: 
  Country: None (occurrence: None)
  Receive Date: 20120619
  Receipt Date: 20120607
  Transmission Date: 20120825
  Serious: Yes (Other)
  Sender: FDA-Public Use
  Company Number: CN-PFIZER INC-2012139251

PATIENT
  Age: 51 Year
  Sex: Female
  Weight: 52 kg

DRUGS (2)
  1. AMBROXOL HYDROCHLORIDE [Concomitant]
     Indication: UPPER RESPIRATORY TRACT INFECTION
     Dosage: 120 MG, 1X/DAY
     Route: 041
     Dates: start: 20080916, end: 20080916
  2. ZITHROMAX [Suspect]
     Indication: UPPER RESPIRATORY TRACT INFECTION
     Dosage: 0.5G, ONCE DAILY
     Route: 041
     Dates: start: 20080916, end: 20080916

REACTIONS (2)
  - INJECTION SITE ABSCESS [None]
  - DRUG HYPERSENSITIVITY [None]
